FAERS Safety Report 12835907 (Version 3)
Quarter: 2017Q1

REPORT INFORMATION
  Report Type: Spontaneous
  Country: JP (occurrence: JP)
  Receive Date: 20161011
  Receipt Date: 20170116
  Transmission Date: 20170428
  Serious: Yes (Other)
  Sender: FDA-Public Use
  Company Number: JP-MYLANLABS-2016M1042868

PATIENT

DRUGS (8)
  1. ISOZOL [Suspect]
     Active Substance: THIAMYLAL SODIUM
     Indication: INDUCTION OF ANAESTHESIA
     Dosage: 100 MG, QD
     Route: 065
     Dates: start: 20150706, end: 20150706
  2. ROCURONIUM [Suspect]
     Active Substance: ROCURONIUM BROMIDE
     Indication: INDUCTION OF ANAESTHESIA
     Dosage: 15 MG, QD
     Route: 065
     Dates: start: 20150706, end: 20150706
  3. ROCURONIUM [Suspect]
     Active Substance: ROCURONIUM BROMIDE
     Indication: MAINTENANCE OF ANAESTHESIA
  4. SEVOFLURANE MYLAN [Suspect]
     Active Substance: SEVOFLURANE
     Indication: INDUCTION OF ANAESTHESIA
     Dosage: 5 %, PRN
     Route: 055
     Dates: start: 20150706, end: 20150706
  5. FENTANYL. [Suspect]
     Active Substance: FENTANYL
     Indication: MAINTENANCE OF ANAESTHESIA
  6. FENTANYL. [Suspect]
     Active Substance: FENTANYL
     Indication: INDUCTION OF ANAESTHESIA
     Dosage: 25 ?G, QD
     Route: 065
     Dates: start: 20150706, end: 20150706
  7. SEVOFLURANE MYLAN [Suspect]
     Active Substance: SEVOFLURANE
     Indication: MAINTENANCE OF ANAESTHESIA
     Dosage: 2 %, PRN
     Route: 055
     Dates: start: 20150706, end: 20150706
  8. REMIFENTANIL [Suspect]
     Active Substance: REMIFENTANIL
     Indication: MAINTENANCE OF ANAESTHESIA
     Dosage: ??
     Route: 065
     Dates: start: 20150706, end: 20150706

REACTIONS (1)
  - Hyperthermia malignant [Recovered/Resolved]

NARRATIVE: CASE EVENT DATE: 20150706
